FAERS Safety Report 18000744 (Version 1)
Quarter: 2020Q3

REPORT INFORMATION
  Report Type: Spontaneous
  Country: ES (occurrence: ES)
  Receive Date: 20200709
  Receipt Date: 20200709
  Transmission Date: 20201104
  Serious: Yes (Other)
  Sender: FDA-Public Use
  Company Number: ES-PFIZER INC-2020202404

PATIENT
  Sex: Female

DRUGS (9)
  1. CALCIFEDIOL [Suspect]
     Active Substance: CALCIFEDIOL
     Dosage: 1 DF, CYCLIC (EVERY 2 WEEKS)
  2. METHOTREXATE SODIUM. [Suspect]
     Active Substance: METHOTREXATE SODIUM
     Dosage: 25 MG, WEEKLY
     Route: 058
  3. ACTONEL [Suspect]
     Active Substance: RISEDRONATE SODIUM
     Dosage: 35 MG, WEEKLY
  4. PREDNISONE. [Suspect]
     Active Substance: PREDNISONE
     Dosage: 5 MG, DAILY
  5. METHOTREXATE SODIUM. [Suspect]
     Active Substance: METHOTREXATE SODIUM
     Dosage: 30 MG, WEEKLY
     Route: 058
  6. FOLIC ACID. [Suspect]
     Active Substance: FOLIC ACID
     Dosage: 5 MG, WEEKLY (THE DAY AFTER ADMINISTRATION OF METHOTREXATE)
  7. PREDNISONE. [Suspect]
     Active Substance: PREDNISONE
     Dosage: 10 MG, DAILY
  8. ETORICOXIB. [Suspect]
     Active Substance: ETORICOXIB
     Dosage: 90 MG, DAILY
  9. SARILUMAB [Suspect]
     Active Substance: SARILUMAB
     Dosage: 200 MG, CYCLIC (EVERY TWO WEEKS)
     Route: 058

REACTIONS (6)
  - Leukopenia [Recovered/Resolved]
  - Arthralgia [Unknown]
  - Osteoporosis [Unknown]
  - Off label use [Unknown]
  - Therapeutic response unexpected [Unknown]
  - Product use issue [Unknown]

NARRATIVE: CASE EVENT DATE: 2016
